FAERS Safety Report 7198191-5 (Version None)
Quarter: 2010Q4

REPORT INFORMATION
  Report Type: 
  Country: None (occurrence: None)
  Receive Date: 20101227
  Receipt Date: 20101213
  Transmission Date: 20110411
  Serious: Yes (Other)
  Sender: FDA-Public Use
  Company Number: PHHY2010IT85001

PATIENT
  Sex: Female

DRUGS (4)
  1. ZOMETA [Suspect]
     Indication: BREAST CANCER
     Dosage: 4 MG
     Route: 042
     Dates: start: 20090401, end: 20100906
  2. ATENOLOL [Concomitant]
     Dosage: 50 MG, UNK
  3. ESCITALOPRAM [Concomitant]
     Dosage: 20 MG, UNK
     Route: 048
  4. MODURETIC 5-50 [Concomitant]
     Dosage: 27.5 MG, UNK
     Route: 048

REACTIONS (2)
  - GINGIVAL ULCERATION [None]
  - OSTEONECROSIS OF JAW [None]
